FAERS Safety Report 14374668 (Version 1)
Quarter: 2018Q1

REPORT INFORMATION
  Report Type: Spontaneous
  Country: US (occurrence: US)
  Receive Date: 20180110
  Receipt Date: 20180110
  Transmission Date: 20180509
  Serious: No
  Sender: FDA-Public Use
  Company Number: None

PATIENT
  Age: 67 Year
  Sex: Female
  Weight: 90 kg

DRUGS (4)
  1. VENTOLIN [Concomitant]
     Active Substance: ALBUTEROL SULFATE
  2. CPAP [Concomitant]
     Active Substance: DEVICE
  3. AMOX-CLAV [Concomitant]
     Active Substance: AMOXICILLIN\CLAVULANATE POTASSIUM
  4. METHYLPREDNISONE [Suspect]
     Active Substance: METHYLPREDNISOLONE
     Indication: SINUSITIS
     Route: 048
     Dates: start: 20180104, end: 20180109

REACTIONS (20)
  - Anxiety [None]
  - Burning sensation [None]
  - Fear [None]
  - Dyspnoea [None]
  - Anger [None]
  - Palpitations [None]
  - Diarrhoea [None]
  - Wheezing [None]
  - Suicidal behaviour [None]
  - Aggression [None]
  - Ear disorder [None]
  - Muscle spasms [None]
  - Chest discomfort [None]
  - Hostility [None]
  - Crying [None]
  - Depression [None]
  - Erythema [None]
  - Insomnia [None]
  - Chest pain [None]
  - Headache [None]

NARRATIVE: CASE EVENT DATE: 20180109
